FAERS Safety Report 25052237 (Version 1)
Quarter: 2025Q1

REPORT INFORMATION
  Report Type: Spontaneous
  Country: JP (occurrence: JP)
  Receive Date: 20250307
  Receipt Date: 20250307
  Transmission Date: 20250409
  Serious: Yes (Death, Hospitalization, Other)
  Sender: MERCK SHARP & DOHME LLC
  Company Number: JP-ONO-2024JP021410

PATIENT
  Age: 70 Year
  Sex: Female
  Weight: 50.7 kg

DRUGS (10)
  1. EMEND [Suspect]
     Active Substance: APREPITANT
     Indication: Prophylaxis of nausea and vomiting
     Route: 048
     Dates: start: 20240905, end: 20240906
  2. VONOPRAZAN FUMARATE [Concomitant]
     Active Substance: VONOPRAZAN FUMARATE
     Dosage: 20 MG, EVERYDAY
     Route: 048
     Dates: start: 20240326, end: 20241030
  3. SODIUM FERROUS CITRATE [Concomitant]
     Active Substance: SODIUM FERROUS CITRATE
     Dosage: 50 MG, EVERYDAY
     Route: 048
     Dates: start: 20240328, end: 20241016
  4. OPDIVO [Suspect]
     Active Substance: NIVOLUMAB
     Indication: Gastric cancer
     Route: 041
     Dates: start: 20240417, end: 20240904
  5. OXALIPLATIN [Concomitant]
     Active Substance: OXALIPLATIN
     Indication: Gastric cancer
     Route: 041
     Dates: start: 20240417, end: 20240507
  6. OXALIPLATIN [Concomitant]
     Active Substance: OXALIPLATIN
     Indication: Gastric cancer
     Route: 041
     Dates: start: 20240724, end: 20240904
  7. OXALIPLATIN [Concomitant]
     Active Substance: OXALIPLATIN
     Indication: Gastric cancer
     Route: 041
     Dates: start: 20240703, end: 20240703
  8. PALONOSETRON HYDROCHLORIDE [Concomitant]
     Active Substance: PALONOSETRON HYDROCHLORIDE
     Indication: Gastric cancer
     Dosage: 0.75 MG, EVERYDAY
     Route: 041
     Dates: start: 20240417, end: 20240904
  9. BROTIZOLAM [Concomitant]
     Active Substance: BROTIZOLAM
     Indication: Cerebral infarction
     Dosage: 0.25 MG, EVERYDAY
     Route: 048
     Dates: start: 20240417, end: 20241028
  10. GIMERACIL\OTERACIL\TEGAFUR [Concomitant]
     Active Substance: GIMERACIL\OTERACIL POTASSIUM\TEGAFUR
     Indication: Gastric cancer
     Dosage: 100 MG, EVERYDAY
     Route: 065
     Dates: start: 20240417, end: 20240710

REACTIONS (4)
  - Immune-mediated cholangitis [Fatal]
  - Hepatitis [Not Recovered/Not Resolved]
  - Cerebral infarction [Unknown]
  - Diarrhoea [Unknown]

NARRATIVE: CASE EVENT DATE: 20240710
